FAERS Safety Report 4868809-8 (Version None)
Quarter: 2005Q4

REPORT INFORMATION
  Report Type: 
  Country: None (occurrence: None)
  Receive Date: 20051223
  Receipt Date: 20051212
  Transmission Date: 20060501
  Serious: Yes (Hospitalization)
  Sender: FDA-Public Use
  Company Number: 13026

PATIENT
  Age: 81 Year
  Sex: Female

DRUGS (4)
  1. CARBOPLATIN [Suspect]
  2. PACLITAXEL [Suspect]
  3. DMXAA [Suspect]
     Indication: OVARIAN EPITHELIAL CANCER RECURRENT
     Dosage: 1860 MG DAILY IV
     Route: 042
     Dates: start: 20050701, end: 20051107
  4. LEVOTHYROXINE [Concomitant]

REACTIONS (5)
  - ASTHENIA [None]
  - HAEMOGLOBIN DECREASED [None]
  - PLATELET COUNT DECREASED [None]
  - VOMITING [None]
  - WHITE BLOOD CELL COUNT DECREASED [None]
